FAERS Safety Report 16191106 (Version 4)
Quarter: 2019Q2

REPORT INFORMATION
  Report Type: Report from Study
  Country: US (occurrence: US)
  Receive Date: 20190412
  Receipt Date: 20190429
  Transmission Date: 20190711
  Serious: Yes (Hospitalization, Other)
  Sender: FDA-Public Use
  Company Number: US-BRISTOL-MYERS SQUIBB COMPANY-BMS-2019-036572

PATIENT
  Age: 75 Year
  Sex: Female
  Weight: 95.6 kg

DRUGS (2)
  1. CYCLOPHOSPHAMIDE. [Suspect]
     Active Substance: CYCLOPHOSPHAMIDE
     Indication: ACUTE MYELOID LEUKAEMIA
     Dosage: 350 MILLIGRAM, QWK
     Route: 048
     Dates: start: 20190315, end: 20190329
  2. NIVOLUMAB [Suspect]
     Active Substance: NIVOLUMAB
     Indication: ACUTE MYELOID LEUKAEMIA
     Dosage: 3 MILLIGRAM/KILOGRAM, Q2WK
     Route: 042
     Dates: start: 20190315, end: 20190329

REACTIONS (6)
  - Wheezing [Unknown]
  - Dizziness [Unknown]
  - Cough [Unknown]
  - Infection [Unknown]
  - Hypoxia [Unknown]
  - Asthenia [Unknown]

NARRATIVE: CASE EVENT DATE: 20190404
